FAERS Safety Report 9234595 (Version 1)
Quarter: 2013Q2

REPORT INFORMATION
  Report Type: Spontaneous
  Country: US (occurrence: US)
  Receive Date: 20130416
  Receipt Date: 20130416
  Transmission Date: 20140414
  Serious: No
  Sender: FDA-Public Use
  Company Number: US-MYLANLABS-2013S1002124

PATIENT
  Age: 85 Year
  Sex: Female
  Weight: 48.99 kg

DRUGS (7)
  1. VALSARTAN AND HYDROCHLOROTHIAZIDE TABLETS [Suspect]
     Indication: BLOOD PRESSURE INCREASED
     Route: 048
     Dates: start: 20130125, end: 20130125
  2. SIMVASTATIN [Concomitant]
     Route: 048
  3. ACIPHEX [Concomitant]
     Route: 048
  4. COUMADIN [Concomitant]
     Route: 048
  5. BYSTOLIC [Concomitant]
     Route: 048
  6. LEVOTHYROXINE [Concomitant]
     Route: 048
  7. AMLODIPINE [Concomitant]
     Route: 048

REACTIONS (1)
  - Choking sensation [Recovered/Resolved]
